FAERS Safety Report 19292628 (Version 1)
Quarter: 2021Q2

REPORT INFORMATION
  Report Type: Spontaneous
  Country: ES (occurrence: ES)
  Receive Date: 20210524
  Receipt Date: 20210524
  Transmission Date: 20210717
  Serious: Yes (Other)
  Sender: FDA-Public Use
  Company Number: ES-LUPIN PHARMACEUTICALS INC.-2021-07614

PATIENT
  Age: 41 Year
  Sex: Female

DRUGS (7)
  1. TRIAMCINOLONE [Suspect]
     Active Substance: TRIAMCINOLONE
     Indication: CROHN^S DISEASE
     Dosage: TRIAMCINOLONE INFILTRATIONS
     Route: 026
  2. METRONIDAZOLE. [Suspect]
     Active Substance: METRONIDAZOLE
     Indication: CROHN^S DISEASE
     Dosage: 500 MILLIGRAM, TID
     Route: 065
  3. AZATHIOPRINE. [Suspect]
     Active Substance: AZATHIOPRINE
     Indication: METASTATIC CUTANEOUS CROHN^S DISEASE
     Dosage: 100 MILLIGRAM, QD
     Route: 065
  4. INFLIXIMAB [Concomitant]
     Active Substance: INFLIXIMAB
     Indication: METASTATIC CUTANEOUS CROHN^S DISEASE
     Dosage: 5 MILLIGRAM/KILOGRAM
     Route: 065
  5. INFLIXIMAB [Concomitant]
     Active Substance: INFLIXIMAB
     Dosage: 5 MILLIGRAM/KILOGRAM
     Route: 065
  6. PREDNISONE. [Suspect]
     Active Substance: PREDNISONE
     Indication: METASTATIC CUTANEOUS CROHN^S DISEASE
     Dosage: 0.5?1 MG/KG
     Route: 048
  7. CLOBETASOL [Concomitant]
     Active Substance: CLOBETASOL
     Indication: CROHN^S DISEASE
     Dosage: UNK
     Route: 061

REACTIONS (1)
  - Treatment failure [Unknown]
